FAERS Safety Report 11163548 (Version 1)
Quarter: 2015Q2

REPORT INFORMATION
  Report Type: Spontaneous
  Country: US (occurrence: US)
  Receive Date: 20150604
  Receipt Date: 20150604
  Transmission Date: 20150821
  Serious: Yes (Other)
  Sender: FDA-Public Use
  Company Number: US-PFIZER INC-2015183604

PATIENT
  Age: 31 Year
  Sex: Female
  Weight: 61.68 kg

DRUGS (3)
  1. KLONOPIN [Concomitant]
     Active Substance: CLONAZEPAM
     Dosage: UNK
  2. KEPPRA [Concomitant]
     Active Substance: LEVETIRACETAM
     Dosage: 1250 MG, 1X/DAY
  3. NEURONTIN [Suspect]
     Active Substance: GABAPENTIN
     Indication: CYSTITIS INTERSTITIAL
     Dosage: 700 MG, 3X/DAY
     Dates: start: 201312

REACTIONS (16)
  - Muscle twitching [Not Recovered/Not Resolved]
  - Bedridden [Unknown]
  - Dyskinesia [Not Recovered/Not Resolved]
  - Pruritus [Not Recovered/Not Resolved]
  - Akathisia [Not Recovered/Not Resolved]
  - Agitation [Not Recovered/Not Resolved]
  - Hypotension [Not Recovered/Not Resolved]
  - Fear [Not Recovered/Not Resolved]
  - Aggression [Not Recovered/Not Resolved]
  - Alopecia [Not Recovered/Not Resolved]
  - Anxiety [Not Recovered/Not Resolved]
  - Arthralgia [Not Recovered/Not Resolved]
  - Dyspnoea [Not Recovered/Not Resolved]
  - Palpitations [Not Recovered/Not Resolved]
  - Tremor [Not Recovered/Not Resolved]
  - Peripheral coldness [Not Recovered/Not Resolved]
